FAERS Safety Report 18751833 (Version 2)
Quarter: 2021Q1

REPORT INFORMATION
  Report Type: Spontaneous
  Country: US (occurrence: US)
  Receive Date: 20210118
  Receipt Date: 20210127
  Transmission Date: 20210419
  Serious: Yes (Death, Other)
  Sender: FDA-Public Use
  Company Number: US-SA-2021SA011324

PATIENT
  Sex: Male

DRUGS (4)
  1. SODIUM BICARBONATE. [Concomitant]
     Active Substance: SODIUM BICARBONATE
     Dosage: UNK
     Route: 065
  2. SYNVISC [Suspect]
     Active Substance: HYLAN G-F 20
     Indication: ARTHRITIS
     Dosage: UNK
     Route: 014
     Dates: start: 19980314
  3. LIDOCAINE. [Suspect]
     Active Substance: LIDOCAINE
     Indication: LOSS OF CONSCIOUSNESS
     Route: 065
  4. LEVOPHED [Concomitant]
     Active Substance: NOREPINEPHRINE BITARTRATE
     Route: 065

REACTIONS (12)
  - Off label use of device [Fatal]
  - Hypokinesia [Fatal]
  - Extrasystoles [Fatal]
  - Ventricular arrhythmia [Fatal]
  - Overdose [Fatal]
  - Loss of consciousness [Fatal]
  - Blood pressure decreased [Fatal]
  - Cardiovascular insufficiency [Fatal]
  - Dyspnoea [Fatal]
  - Atrioventricular block first degree [Fatal]
  - Chills [Fatal]
  - Cardiac arrest [Fatal]

NARRATIVE: CASE EVENT DATE: 19980314
